FAERS Safety Report 4416246-2 (Version None)
Quarter: 2004Q3

REPORT INFORMATION
  Report Type: 
  Country: None (occurrence: None)
  Receive Date: 20040805
  Receipt Date: 20040625
  Transmission Date: 20050211
  Serious: Yes (Other)
  Sender: FDA-Public Use
  Company Number: 200416433GDDC

PATIENT
  Age: 63 Year
  Sex: Male

DRUGS (7)
  1. RIFAMPICIN [Suspect]
     Indication: IMPLANT SITE INFECTION
     Dosage: DOSE: UNK
  2. VANCOMYCIN HCL [Suspect]
     Indication: IMPLANT SITE INFECTION
     Dosage: DOSE: UNK
  3. DILTIAZEM [Concomitant]
  4. ATORVASTATIN CALCIUM [Concomitant]
  5. PARACETAMOL [Concomitant]
  6. LISINOPRIL [Concomitant]
  7. TEMAZEPAM [Concomitant]

REACTIONS (7)
  - ACUTE GENERALISED EXANTHEMATOUS PUSTULOSIS [None]
  - ANURIA [None]
  - BLOOD PRESSURE DECREASED [None]
  - HEART RATE INCREASED [None]
  - LEUKOPENIA [None]
  - SKIN DESQUAMATION [None]
  - SKIN TEST POSITIVE [None]
